FAERS Safety Report 19977136 (Version 1)
Quarter: 2021Q4

REPORT INFORMATION
  Report Type: Spontaneous
  Country: SE (occurrence: SE)
  Receive Date: 20211020
  Receipt Date: 20211020
  Transmission Date: 20220303
  Serious: Yes (Hospitalization)
  Sender: FDA-Public Use
  Company Number: SE-TEVA-2021-SE-1966559

PATIENT
  Age: 7 Decade
  Sex: Female

DRUGS (7)
  1. METHOTREXATE [Suspect]
     Active Substance: METHOTREXATE
     Indication: Palindromic rheumatism
     Dosage: FOR 6 YEARS
     Route: 065
     Dates: start: 201302
  2. PREDNISOLONE [Suspect]
     Active Substance: PREDNISOLONE
     Indication: Palindromic rheumatism
     Dosage: FOR 8 YEARS
     Route: 065
  3. HYDROXYCHLOROQUINE [Suspect]
     Active Substance: HYDROXYCHLOROQUINE
     Indication: Palindromic rheumatism
     Route: 065
  4. ADALIMUMAB [Suspect]
     Active Substance: ADALIMUMAB
     Indication: Palindromic rheumatism
     Dosage: FOR 5.5 YEARS
     Route: 065
  5. INFLIXIMAB [Suspect]
     Active Substance: INFLIXIMAB
     Indication: Palindromic rheumatism
     Dosage: FOR 5.5 YEARS
     Route: 065
  6. ABATACEPT [Suspect]
     Active Substance: ABATACEPT
     Indication: Palindromic rheumatism
     Dosage: FOR 5.5 YEARS
     Route: 065
  7. LEVOTHYROXINE [Concomitant]
     Active Substance: LEVOTHYROXINE
     Indication: Goitre
     Route: 065

REACTIONS (3)
  - Rheumatoid arthritis [Recovering/Resolving]
  - Paradoxical drug reaction [Recovering/Resolving]
  - Whipple^s disease [Recovered/Resolved]
